FAERS Safety Report 24351897 (Version 1)
Quarter: 2024Q3

REPORT INFORMATION
  Report Type: Spontaneous
  Country: AT (occurrence: AT)
  Receive Date: 20240923
  Receipt Date: 20240923
  Transmission Date: 20241017
  Serious: Yes (Other)
  Sender: CHEPLAPHARM
  Company Number: AT-CHEPLA-2024011943

PATIENT
  Sex: Male

DRUGS (2)
  1. OLANZAPINE [Suspect]
     Active Substance: OLANZAPINE
     Indication: Psychotic disorder
     Dosage: ABOUT 4 WEEKS
     Dates: start: 2004
  2. LORAZEPAM [Suspect]
     Active Substance: LORAZEPAM

REACTIONS (4)
  - Persistent depressive disorder [Not Recovered/Not Resolved]
  - Nervousness [Not Recovered/Not Resolved]
  - Irritability [Not Recovered/Not Resolved]
  - Restlessness [Unknown]
